FAERS Safety Report 4389221-4 (Version None)
Quarter: 2004Q3

REPORT INFORMATION
  Report Type: 
  Country: None (occurrence: None)
  Receive Date: 20040701
  Receipt Date: 20040701
  Transmission Date: 20050211
  Serious: Yes (Hospitalization)
  Sender: FDA-Public Use
  Company Number: None

PATIENT
  Age: 80 Year
  Sex: Male
  Weight: 58 kg

DRUGS (14)
  1. LOVASTATIN [Suspect]
     Indication: HYPERLIPIDAEMIA
     Dosage: 20 MG QDAY ORAL
     Route: 048
     Dates: start: 20040122, end: 20040303
  2. GEMFIBROZIL [Suspect]
     Indication: HYPERLIPIDAEMIA
     Dosage: 600 MG BID ORAL
     Route: 048
     Dates: start: 20040122, end: 20040302
  3. PROCHLORPERAZINE MALEATE [Concomitant]
  4. ATROPIN/DIPHENOXYLATE [Concomitant]
  5. ALLOPURINOL [Concomitant]
  6. ATENOLOL [Concomitant]
  7. BUMETANIDE [Concomitant]
  8. DIGOXIN [Concomitant]
  9. DOXAZOSIN MESYLATE [Concomitant]
  10. LISINOPRIL [Concomitant]
  11. LOVASTATIN [Concomitant]
  12. POTASSIUM CHLORIDE [Concomitant]
  13. GEMFIBROZIL [Concomitant]
  14. MESALAMINE [Concomitant]

REACTIONS (5)
  - DEHYDRATION [None]
  - DIARRHOEA [None]
  - RASH GENERALISED [None]
  - RENAL FAILURE ACUTE [None]
  - RHABDOMYOLYSIS [None]
